FAERS Safety Report 8048894-5 (Version None)
Quarter: 2012Q1

REPORT INFORMATION
  Report Type: 
  Country: None (occurrence: None)
  Receive Date: 20120117
  Receipt Date: 20120105
  Transmission Date: 20120608
  Serious: Yes (Hospitalization)
  Sender: FDA-Public Use
  Company Number: US-ELI_LILLY_AND_COMPANY-US201007002029

PATIENT
  Sex: Female

DRUGS (6)
  1. LIPITOR [Concomitant]
  2. GLUCOTROL XL [Concomitant]
  3. DIGOXIN [Concomitant]
  4. PROPRANOLOL [Concomitant]
  5. WARFARIN SODIUM [Concomitant]
  6. FORTEO [Suspect]
     Indication: OSTEOPOROSIS
     Dosage: 20 UG, DAILY (1/D)
     Route: 058
     Dates: start: 20100618

REACTIONS (5)
  - UROSEPSIS [None]
  - URINARY TRACT INFECTION [None]
  - ANAEMIA [None]
  - FEAR [None]
  - MEMORY IMPAIRMENT [None]
